FAERS Safety Report 4358756-2 (Version None)
Quarter: 2004Q2

REPORT INFORMATION
  Report Type: 
  Country: None (occurrence: None)
  Receive Date: 20040517
  Receipt Date: 20040511
  Transmission Date: 20050107
  Serious: Yes (Death, Hospitalization)
  Sender: FDA-Public Use
  Company Number: 200411911FR

PATIENT
  Age: 79 Year
  Sex: Female

DRUGS (7)
  1. BIRODOGYL [Suspect]
     Route: 048
  2. TIMOPTIC [Suspect]
     Dosage: ROUTE: CONJUNCTIVAL, RETROBULBAR
     Route: 050
  3. VEXOL [Suspect]
     Dosage: ROUTE: CONJUNCTIVAL, RETROBULBAR
     Route: 050
  4. HYZAAR [Suspect]
     Route: 048
  5. ZANIDIP [Suspect]
     Route: 048
  6. NEXEN [Suspect]
     Route: 048
  7. VEYBIROL-TYROTHRICINE [Concomitant]
     Route: 002

REACTIONS (3)
  - ASTHENIA [None]
  - COMA [None]
  - INFECTION [None]
